FAERS Safety Report 23910921 (Version 3)
Quarter: 2024Q4

REPORT INFORMATION
  Report Type: Spontaneous
  Country: US (occurrence: US)
  Receive Date: 20240528
  Receipt Date: 20241125
  Transmission Date: 20250114
  Serious: No
  Sender: AVADEL CNS PHARMACEUTICALS, LLC
  Company Number: US-AVADEL CNS PHARMACEUTICALS, LLC-2024AVA00559

PATIENT
  Sex: Male
  Weight: 79.365 kg

DRUGS (28)
  1. LUMRYZ [Suspect]
     Active Substance: SODIUM OXYBATE
     Indication: Narcolepsy
     Dosage: 7.5 G, ONCE NIGHTLY AT BEDTIME
     Route: 048
     Dates: start: 20240101, end: 2024
  2. LUMRYZ [Suspect]
     Active Substance: SODIUM OXYBATE
     Indication: Cataplexy
  3. LUMRYZ [Suspect]
     Active Substance: SODIUM OXYBATE
     Indication: Narcolepsy
     Dosage: 9 G, ONCE NIGHTLY AT BEDTIME
     Route: 048
     Dates: start: 2024
  4. LUMRYZ [Suspect]
     Active Substance: SODIUM OXYBATE
     Indication: Cataplexy
  5. DICYCLOMINE HYDROCHLORIDE [Suspect]
     Active Substance: DICYCLOMINE HYDROCHLORIDE
  6. BUDESONIDE [Concomitant]
     Active Substance: BUDESONIDE
     Dosage: UNK
  7. MINERALS [Concomitant]
     Active Substance: MINERALS
  8. UNSPECIFIED GALLBLADDER SUPPLEMENT [Concomitant]
  9. HYDROCORTISONE-ALOE [Concomitant]
  10. CLOTRIMAZOLE 3 [Concomitant]
  11. VENLAFAXINE HCL [Concomitant]
     Active Substance: VENLAFAXINE HYDROCHLORIDE
  12. VITAMINS NOS [Concomitant]
     Active Substance: VITAMINS
  13. STELARA [Concomitant]
     Active Substance: USTEKINUMAB
  14. CHLOROPHYLL [Concomitant]
  15. FISH OIL [Concomitant]
     Active Substance: FISH OIL
  16. VITAMIN D3 [Concomitant]
     Active Substance: CHOLECALCIFEROL
  17. IRON [Concomitant]
     Active Substance: IRON
  18. PROBIOTIC 10 BILLION DAILY MAINTENANCE [Concomitant]
  19. PREDNISONE [Concomitant]
     Active Substance: PREDNISONE
  20. METOPROLOL SUCCINATE [Concomitant]
     Active Substance: METOPROLOL SUCCINATE
  21. ARMODAFINIL [Concomitant]
     Active Substance: ARMODAFINIL
  22. FLUOXETINE HYDROCHLORIDE [Concomitant]
     Active Substance: FLUOXETINE HYDROCHLORIDE
  23. LAMOTRIGINE [Concomitant]
     Active Substance: LAMOTRIGINE
  24. ALLEGRA ALLERGY [Concomitant]
     Active Substance: FEXOFENADINE HYDROCHLORIDE
  25. SINGULAIR [Concomitant]
     Active Substance: MONTELUKAST SODIUM
  26. VITAMIN B COMPLEX [Concomitant]
     Active Substance: CYANOCOBALAMIN\DEXPANTHENOL\NIACINAMIDE\PYRIDOXINE HYDROCHLORIDE\RIBOFLAVIN 5^-PHOSPHATE SODIUM\THIA
  27. XELJANZ [Concomitant]
     Active Substance: TOFACITINIB CITRATE
     Dosage: UNK
  28. SUNOSI [Concomitant]
     Active Substance: SOLRIAMFETOL
     Dosage: DURING THE DAY

REACTIONS (9)
  - Middle insomnia [Not Recovered/Not Resolved]
  - Initial insomnia [Not Recovered/Not Resolved]
  - Fatigue [Not Recovered/Not Resolved]
  - Somnolence [Not Recovered/Not Resolved]
  - Nocturia [Not Recovered/Not Resolved]
  - Pain [Not Recovered/Not Resolved]
  - Depression [Recovering/Resolving]
  - Intentional dose omission [Unknown]
  - Product dose omission issue [Not Recovered/Not Resolved]

NARRATIVE: CASE EVENT DATE: 20240101
